FAERS Safety Report 5375822-3 (Version None)
Quarter: 2007Q3

REPORT INFORMATION
  Report Type: 
  Country: None (occurrence: None)
  Receive Date: 20070702
  Receipt Date: 20070626
  Transmission Date: 20080115
  Serious: Yes (Life-Threatening, Hospitalization, Other)
  Sender: FDA-Public Use
  Company Number: PHBS2007JP09926

PATIENT
  Age: 82 Year
  Sex: Female
  Weight: 56 kg

DRUGS (10)
  1. DIOVAN [Suspect]
     Indication: HYPERTENSION
     Dosage: 80 MG, QD
     Route: 048
     Dates: start: 20021201
  2. DIOVAN [Suspect]
     Dates: start: 20021212, end: 20030106
  3. TRANDOLAPRIL [Suspect]
     Indication: HYPERTENSION
     Route: 048
     Dates: start: 19820101
  4. SPIRONOLACTONE [Suspect]
     Indication: HYPERTENSION
     Dosage: UNK, UNK
     Route: 048
     Dates: start: 20021101
  5. ODRIK [Suspect]
     Indication: HYPERTENSION
     Dosage: 2 MG/DAY
     Route: 048
     Dates: start: 19971106, end: 20030106
  6. ALDACTONE [Suspect]
     Indication: HYPERTENSION
     Dosage: 25 MG/DAY
     Route: 048
     Dates: start: 20021118, end: 20030106
  7. LANDEL [Suspect]
     Indication: HYPERTENSION
     Dosage: 60 MG/DAY
     Route: 048
     Dates: start: 20010227, end: 20030106
  8. LANDEL [Suspect]
     Dosage: 20 MG/DAY
     Route: 048
     Dates: start: 20030110
  9. SALOBEL [Suspect]
     Indication: HYPERURICAEMIA
     Dosage: 100 MG/DAY
     Route: 048
     Dates: start: 19970225, end: 20030106
  10. PIMENOL [Suspect]
     Indication: VENTRICULAR ARRHYTHMIA
     Dosage: 100 MG/DAY
     Route: 048
     Dates: start: 19971106, end: 20030106

REACTIONS (23)
  - ANOREXIA [None]
  - ASTHENIA [None]
  - BLOOD BICARBONATE DECREASED [None]
  - BLOOD CREATININE INCREASED [None]
  - BLOOD POTASSIUM INCREASED [None]
  - BLOOD PRESSURE DECREASED [None]
  - BLOOD PRESSURE INADEQUATELY CONTROLLED [None]
  - BLOOD UREA INCREASED [None]
  - BRADYCARDIA [None]
  - COMPUTERISED TOMOGRAM ABNORMAL [None]
  - ELECTROCARDIOGRAM ABNORMAL [None]
  - FEELING COLD [None]
  - GAIT DISTURBANCE [None]
  - HAEMODIALYSIS [None]
  - HAEMOGLOBIN DECREASED [None]
  - HYPERKALAEMIA [None]
  - MUSCULAR WEAKNESS [None]
  - RENAL FAILURE ACUTE [None]
  - RENAL HYPERTENSION [None]
  - SINUS ARREST [None]
  - TREMOR [None]
  - VENTRICULAR EXTRASYSTOLES [None]
  - WHITE BLOOD CELL COUNT INCREASED [None]
